FAERS Safety Report 10196631 (Version 1)
Quarter: 2014Q2

REPORT INFORMATION
  Report Type: Spontaneous
  Country: JP (occurrence: JP)
  Receive Date: 20140527
  Receipt Date: 20140527
  Transmission Date: 20141212
  Serious: Yes (Other)
  Sender: FDA-Public Use
  Company Number: JP-ASTELLAS-2014JP006732

PATIENT
  Sex: 0

DRUGS (1)
  1. FUNGUARD [Suspect]
     Indication: ASPERGILLUS INFECTION
     Route: 065

REACTIONS (2)
  - Aspergillus infection [Unknown]
  - Drug ineffective [Unknown]
